FAERS Safety Report 5557404-3 (Version None)
Quarter: 2007Q4

REPORT INFORMATION
  Report Type: 
  Country: None (occurrence: None)
  Receive Date: 20071211
  Receipt Date: 20071127
  Transmission Date: 20080405
  Serious: Yes (Hospitalization, Other)
  Sender: FDA-Public Use
  Company Number: GXKR2007PT10201

PATIENT
  Age: 53 Year
  Sex: Male

DRUGS (12)
  1. CYCLOSPORINE [Suspect]
     Indication: PROPHYLAXIS AGAINST GRAFT VERSUS HOST DISEASE
     Dosage: 50 MG, Q12H,
  2. METHOTREXATE [Suspect]
     Indication: PROPHYLAXIS AGAINST GRAFT VERSUS HOST DISEASE
  3. PREDNISOLONE [Suspect]
     Indication: GRAFT VERSUS HOST DISEASE
     Dosage: 30 MG, QOD,; 10 MG, QOD,
  4. FLUDARABINE PHOSPHATE [Concomitant]
  5. BUSULFAN (BUSULFAN) [Concomitant]
  6. ENALAPRIL MALEATE [Concomitant]
  7. BISOPROLOL FUMARATE [Concomitant]
  8. SULFAMETHOXAZOLE W/TRIMETHOPRIM (SULFAMETHOXAZOLE, TRIMETHOPRIM) [Concomitant]
  9. ACYCLOVIR [Concomitant]
  10. MIANSERIN (MIANSERIN) [Concomitant]
  11. FOLATE SODIUM (FOLATE SODIUM) [Concomitant]
  12. MAGNESIUM (MAGNESIUM) [Concomitant]

REACTIONS (32)
  - ACUTE GRAFT VERSUS HOST DISEASE [None]
  - ACUTE GRAFT VERSUS HOST DISEASE IN LIVER [None]
  - ACUTE GRAFT VERSUS HOST DISEASE IN SKIN [None]
  - ANAEMIA [None]
  - AUTOIMMUNE DISORDER [None]
  - CHOLESTASIS [None]
  - CYTOMEGALOVIRUS INFECTION [None]
  - DIPLOPIA [None]
  - DRY EYE [None]
  - DRY MOUTH [None]
  - EYE PAIN [None]
  - FACE OEDEMA [None]
  - GENERALISED OEDEMA [None]
  - GLOMERULONEPHRITIS MINIMAL LESION [None]
  - HEPATIC ENZYME INCREASED [None]
  - HYPERCHOLESTEROLAEMIA [None]
  - HYPOALBUMINAEMIA [None]
  - LICHENOID KERATOSIS [None]
  - MENINGIOMA [None]
  - NEPHROTIC SYNDROME [None]
  - OEDEMA PERIPHERAL [None]
  - PANCYTOPENIA [None]
  - POIKILODERMA [None]
  - PROTEINURIA [None]
  - RASH MACULO-PAPULAR [None]
  - RENAL FAILURE ACUTE [None]
  - RENAL TUBULAR NECROSIS [None]
  - RETICULOCYTOSIS [None]
  - SKIN HYPERTROPHY [None]
  - THROMBOCYTOPENIA [None]
  - THROMBOSIS [None]
  - VENOUS THROMBOSIS [None]
